FAERS Safety Report 25462860 (Version 1)
Quarter: 2025Q2

REPORT INFORMATION
  Report Type: Spontaneous
  Country: US (occurrence: None)
  Receive Date: 20250620
  Receipt Date: 20250620
  Transmission Date: 20250716
  Serious: No
  Sender: FDA-CTU
  Company Number: None

PATIENT

DRUGS (1)
  1. OXYTOCIN [Suspect]
     Active Substance: OXYTOCIN

REACTIONS (4)
  - Product label confusion [None]
  - Inappropriate schedule of product administration [None]
  - Product barcode issue [None]
  - Physical product label issue [None]
